FAERS Safety Report 10985024 (Version 1)
Quarter: 2015Q1

REPORT INFORMATION
  Report Type: Spontaneous
  Country: US (occurrence: None)
  Receive Date: 20150312
  Receipt Date: 20150312
  Transmission Date: 20150721
  Serious: Yes (Other)
  Sender: FDA-Public Use
  Company Number: M2014-035C

PATIENT
  Age: 58 Year
  Sex: Female

DRUGS (11)
  1. ANIMAL ALLERGENS, FEATHER MIX [Suspect]
     Active Substance: ANAS PLATYRHYNCHOS FEATHER\ANSER ANSER FEATHER\GALLUS GALLUS FEATHER
     Indication: ALLERGY TEST
     Dates: start: 20141125
  2. POLLENS - GRASSES, SOUTHERN GRASS MIX [Suspect]
     Active Substance: AGROSTIS GIGANTEA POLLEN\ANTHOXANTHUM ODORATUM POLLEN\CYNODON DACTYLON POLLEN\DACTYLIS GLOMERATA POLLEN\PHLEUM PRATENSE POLLEN\POA PRATENSIS POLLEN\SORGHUM HALEPENSE POLLEN
     Indication: ALLERGY TEST
     Dates: start: 20141125
  3. SALINE-ABS [Suspect]
     Active Substance: SODIUM CHLORIDE
     Indication: ALLERGY TEST
     Dates: start: 20141125
  4. ANIMAL ALLERGENS, AP DOG HAIR AND DANDER CANIS SPP [Suspect]
     Active Substance: CANIS LUPUS FAMILIARIS DANDER\CANIS LUPUS FAMILIARIS HAIR
     Indication: ALLERGY TEST
     Dates: start: 20141125
  5. GLYCERIN. [Suspect]
     Active Substance: GLYCERIN
     Indication: ALLERGY TEST
     Dates: start: 20141125
  6. POLLENS - TREES, TREE MIX 6 [Suspect]
     Active Substance: BETULA NIGRA POLLEN\BETULA PAPYRIFERA POLLEN\BETULA PENDULA POLLEN\FAGUS GRANDIFOLIA POLLEN\FRAXINUS AMERICANA POLLEN\JUGLANS NIGRA POLLEN\POPULUS DELTOIDES POLLEN\ULMUS AMERICANA POLLEN
     Indication: ALLERGY TEST
     Dates: start: 20141125
  7. POLLENS - TREES, TREE MIX 5 [Suspect]
     Active Substance: ACER NEGUNDO POLLEN\ACER RUBRUM POLLEN\ACER SACCHARUM POLLEN\CARYA ILLINOINENSIS POLLEN\PLATANUS OCCIDENTALIS POLLEN\QUERCUS ALBA POLLEN\QUERCUS RUBRA POLLEN\QUERCUS VIRGINIANA POLLEN\SALIX NIGRA POLLEN
     Indication: ALLERGY TEST
     Dates: start: 20141125
  8. MOLD [Suspect]
     Active Substance: ALLERGENIC EXTRACT- MOLD
     Indication: ALLERGY TEST
     Dates: start: 20141125
  9. SALINE-ABS [Suspect]
     Active Substance: SODIUM CHLORIDE
     Indication: ALLERGY TEST
     Dates: start: 20141125
  10. STANDARDIZED CAT HAIR [Suspect]
     Active Substance: FELIS CATUS HAIR
     Indication: ALLERGY TEST
     Dates: start: 20141125
  11. GLYCERIN. [Suspect]
     Active Substance: GLYCERIN
     Indication: ALLERGY TEST
     Dates: start: 20141125

REACTIONS (1)
  - Urticaria [None]

NARRATIVE: CASE EVENT DATE: 20141125
